FAERS Safety Report 8178560-7 (Version None)
Quarter: 2012Q1

REPORT INFORMATION
  Report Type: 
  Country: None (occurrence: None)
  Receive Date: 20120301
  Receipt Date: 20120215
  Transmission Date: 20120608
  Serious: Yes (Other)
  Sender: FDA-Public Use
  Company Number: JP-ALLERGAN-1202618US

PATIENT
  Age: 72 Year
  Sex: Male
  Weight: 70 kg

DRUGS (8)
  1. EPINASTINE HYDROCHLORIDE [Suspect]
     Indication: PRURITUS GENITAL
     Dosage: 20 MG, QD
     Route: 048
     Dates: start: 20111128, end: 20111202
  2. ADVAIR DISKUS 100/50 [Concomitant]
     Indication: ASTHMA
     Dosage: UNK
     Route: 055
  3. AMLODIPINE [Concomitant]
     Indication: HYPERTENSION
     Dosage: 5 MG, UNK
     Route: 048
  4. MUCODYNE [Concomitant]
     Indication: ASTHMA
     Dosage: 1500 MG, UNK
     Route: 048
  5. THEO-DUR [Concomitant]
     Indication: ASTHMA
     Dosage: 400 MG, UNK
     Route: 048
  6. SPIRIVA [Concomitant]
     Indication: ASTHMA
     Dosage: UNK
     Route: 055
  7. EPINASTINE HYDROCHLORIDE [Suspect]
     Indication: PRURITUS
  8. DIOVAN [Concomitant]
     Indication: HYPERTENSION
     Dosage: 80 MG, UNK
     Route: 048

REACTIONS (1)
  - DRUG ERUPTION [None]
